FAERS Safety Report 5114820-1 (Version None)
Quarter: 2006Q3

REPORT INFORMATION
  Report Type: 
  Country: None (occurrence: None)
  Receive Date: 20060922
  Receipt Date: 20060911
  Transmission Date: 20061208
  Serious: Yes (Other)
  Sender: FDA-Public Use
  Company Number: HQWYE586612SEP06

PATIENT
  Age: 64 Year
  Sex: Female
  Weight: 71.28 kg

DRUGS (2)
  1. PREMPRO [Suspect]
     Indication: HORMONE REPLACEMENT THERAPY
     Dosage: 0.625/2.5 MG AT UNSPECIFIED FREQUENCY, ORAL
     Route: 048
     Dates: start: 19980101, end: 20060911
  2. TENORMIN [Concomitant]

REACTIONS (2)
  - BLINDNESS [None]
  - EYE DISORDER [None]
